FAERS Safety Report 6573689-9 (Version None)
Quarter: 2010Q1

REPORT INFORMATION
  Report Type: 
  Country: None (occurrence: None)
  Receive Date: 20100208
  Receipt Date: 20100201
  Transmission Date: 20100710
  Serious: Yes (Other)
  Sender: FDA-Public Use
  Company Number: B0631785A

PATIENT
  Sex: Male

DRUGS (1)
  1. NEOTIGASON [Suspect]
     Indication: PSORIASIS
     Route: 065

REACTIONS (2)
  - BLOOD GLUCOSE INCREASED [None]
  - DIABETES MELLITUS [None]
